FAERS Safety Report 13276595 (Version 2)
Quarter: 2017Q1

REPORT INFORMATION
  Report Type: Report from Study
  Country: CO (occurrence: CO)
  Receive Date: 20170228
  Receipt Date: 20170306
  Transmission Date: 20170428
  Serious: Yes (Death, Hospitalization)
  Sender: FDA-Public Use
  Company Number: CO-ASTELLAS-2017US007563

PATIENT
  Age: 19 Year
  Sex: Male
  Weight: 47 kg

DRUGS (1)
  1. TACROLIMUS. [Suspect]
     Active Substance: TACROLIMUS
     Indication: RENAL TRANSPLANT
     Route: 048
     Dates: start: 20160403, end: 20160816

REACTIONS (1)
  - Kidney transplant rejection [Fatal]

NARRATIVE: CASE EVENT DATE: 20160801
